FAERS Safety Report 6986828-2 (Version None)
Quarter: 2010Q3

REPORT INFORMATION
  Report Type: 
  Country: None (occurrence: None)
  Receive Date: 20100915
  Receipt Date: 20090807
  Transmission Date: 20110219
  Serious: No
  Sender: FDA-Public Use
  Company Number: US-WYE-H10527009

PATIENT
  Sex: Female

DRUGS (3)
  1. PRISTIQ [Suspect]
     Indication: DEPRESSION
     Route: 048
     Dates: start: 20090804
  2. TYLENOL PM [Suspect]
  3. PROTONIX [Concomitant]

REACTIONS (2)
  - CONFUSIONAL STATE [None]
  - MYDRIASIS [None]
